FAERS Safety Report 9657427 (Version 1)
Quarter: 2013Q4

REPORT INFORMATION
  Report Type: Spontaneous
  Country: US (occurrence: US)
  Receive Date: 20131030
  Receipt Date: 20131030
  Transmission Date: 20140711
  Serious: No
  Sender: FDA-Public Use
  Company Number: US-BAYER-2013-132506

PATIENT
  Age: 84 Year
  Sex: Female
  Weight: 79 kg

DRUGS (2)
  1. ALEVE TABLET [Suspect]
     Indication: HEADACHE
     Dosage: 2 DF, PRN
     Route: 048
  2. FUROSEMIDE [Concomitant]
     Dosage: UNK

REACTIONS (1)
  - Drug ineffective [None]
